FAERS Safety Report 9428156 (Version 1)
Quarter: 2013Q3

REPORT INFORMATION
  Report Type: Report from Study
  Country: US (occurrence: US)
  Receive Date: 20130730
  Receipt Date: 20130730
  Transmission Date: 20140515
  Serious: No
  Sender: FDA-Public Use
  Company Number: US-ABBOTT-12P-163-0963058-00

PATIENT
  Sex: Male
  Weight: 79.45 kg

DRUGS (9)
  1. NIASPAN (COATED) 500MG [Suspect]
     Indication: CORONARY ARTERY OCCLUSION
     Dosage: AT BEDTIME
  2. NIASPAN (COATED) 500MG [Suspect]
     Indication: STENT PLACEMENT
  3. LIPITOR [Concomitant]
     Indication: PRODUCT USED FOR UNKNOWN INDICATION
  4. ASA [Concomitant]
     Indication: PRODUCT USED FOR UNKNOWN INDICATION
  5. LEVOTHYROXINE [Concomitant]
     Indication: PRODUCT USED FOR UNKNOWN INDICATION
  6. ONGLYZA [Concomitant]
     Indication: PRODUCT USED FOR UNKNOWN INDICATION
  7. LOSARTAN [Concomitant]
     Indication: PRODUCT USED FOR UNKNOWN INDICATION
  8. ONGLYZA/METFORMIN [Concomitant]
     Indication: PRODUCT USED FOR UNKNOWN INDICATION
  9. METOPROLOL [Concomitant]
     Indication: PRODUCT USED FOR UNKNOWN INDICATION

REACTIONS (5)
  - Flushing [Recovering/Resolving]
  - Feeling hot [Recovering/Resolving]
  - Erythema [Recovering/Resolving]
  - Pruritus [Recovering/Resolving]
  - Rash macular [Recovering/Resolving]
